FAERS Safety Report 6712335-8 (Version None)
Quarter: 2010Q2

REPORT INFORMATION
  Report Type: 
  Country: None (occurrence: None)
  Receive Date: 20100505
  Receipt Date: 20100423
  Transmission Date: 20101027
  Serious: Yes (Death, Hospitalization)
  Sender: FDA-Public Use
  Company Number: DE-ELI_LILLY_AND_COMPANY-DE200912002887

PATIENT
  Age: 77 Year
  Sex: Female

DRUGS (2)
  1. FORTEO [Suspect]
     Indication: OSTEOPOROSIS
     Route: 058
     Dates: start: 20090308
  2. CORTISON [Concomitant]
     Dosage: UNK, UNKNOWN

REACTIONS (5)
  - BONE PAIN [None]
  - DYSSTASIA [None]
  - MYALGIA [None]
  - PNEUMONIA [None]
  - PULMONARY OEDEMA [None]
